FAERS Safety Report 4616061-0 (Version None)
Quarter: 2005Q1

REPORT INFORMATION
  Report Type: 
  Country: None (occurrence: None)
  Receive Date: 20050321
  Receipt Date: 20050311
  Transmission Date: 20050727
  Serious: Yes (Other)
  Sender: FDA-Public Use
  Company Number: 2005-02-0318

PATIENT
  Age: 47 Year
  Sex: Male
  Weight: 80 kg

DRUGS (2)
  1. TEMODAL [Suspect]
     Indication: GLIOMA
     Dosage: 208 MG QD ORAL
     Route: 048
  2. CORTISONE [Concomitant]

REACTIONS (2)
  - AGGRESSION [None]
  - HALLUCINATION [None]
